FAERS Safety Report 25916764 (Version 1)
Quarter: 2025Q4

REPORT INFORMATION
  Report Type: Spontaneous
  Country: CN (occurrence: CN)
  Receive Date: 20251014
  Receipt Date: 20251014
  Transmission Date: 20260117
  Serious: Yes (Hospitalization, Other)
  Sender: EPIC PHARM
  Company Number: CN-EPICPHARMA-CN-2025EPCLIT01148

PATIENT
  Age: 12 Day
  Sex: Female

DRUGS (4)
  1. TROPICAMIDE [Suspect]
     Active Substance: TROPICAMIDE
     Indication: Mydriasis
     Dosage: ONE DROP IN EACH EYE
  2. TROPICAMIDE [Suspect]
     Active Substance: TROPICAMIDE
     Indication: Retinopathy of prematurity
  3. PHENYLEPHRINE [Suspect]
     Active Substance: PHENYLEPHRINE
     Indication: Mydriasis
     Dosage: ONE DROP IN EACH EYE
  4. PHENYLEPHRINE [Suspect]
     Active Substance: PHENYLEPHRINE
     Indication: Retinopathy of prematurity

REACTIONS (1)
  - Neonatal cardiac failure [Recovered/Resolved]
